FAERS Safety Report 7002557-3 (Version None)
Quarter: 2010Q3

REPORT INFORMATION
  Report Type: 
  Country: None (occurrence: None)
  Receive Date: 20100920
  Receipt Date: 20100316
  Transmission Date: 20110219
  Serious: No
  Sender: FDA-Public Use
  Company Number: US-ASTRAZENECA-2010SE11564

PATIENT
  Sex: Female
  Weight: 300 kg

DRUGS (13)
  1. SEROQUEL [Suspect]
     Indication: BIPOLAR DISORDER
     Route: 048
     Dates: start: 20061201, end: 20070501
  2. SEROQUEL [Suspect]
     Route: 048
     Dates: start: 20100115, end: 20100118
  3. SEROQUEL [Suspect]
     Dosage: 200 MG (1 AM, 2 PM)
     Route: 048
     Dates: start: 20100119, end: 20100122
  4. SEROQUEL [Suspect]
     Dosage: 200 MG  (2 AM, 2 PM)
     Route: 048
     Dates: start: 20100123, end: 20100130
  5. SEROQUEL [Suspect]
     Dosage: 1 AM, 3 PM
     Route: 048
     Dates: start: 20100201, end: 20100206
  6. SEROQUEL [Suspect]
     Dosage: 200 MG (1 AM, 1 AFTERNOON, 2 AT BEDTIME)
     Route: 048
     Dates: start: 20100207, end: 20100316
  7. LIPITOR [Concomitant]
     Indication: BLOOD CHOLESTEROL ABNORMAL
  8. BUSPIRONE HCL [Concomitant]
     Indication: ANXIETY
  9. ATENOLOL/CHLORO [Concomitant]
     Indication: BLOOD PRESSURE
     Dosage: 50/25 DAILY
  10. PREMPRO [Concomitant]
     Indication: MENOPAUSE
     Dosage: 0.625/2.5 DAILY
  11. TRAMADOL [Concomitant]
     Indication: PAIN
     Dosage: 50 MG Q4-6H
  12. VITAMINS [Concomitant]
  13. FISH OIL [Concomitant]

REACTIONS (3)
  - CONDUCT DISORDER [None]
  - DYSPHAGIA [None]
  - HYPERMETROPIA [None]
